FAERS Safety Report 6138217-0 (Version None)
Quarter: 2009Q1

REPORT INFORMATION
  Report Type: 
  Country: None (occurrence: None)
  Receive Date: 20090331
  Receipt Date: 20090330
  Transmission Date: 20090719
  Serious: Yes (Other)
  Sender: FDA-Public Use
  Company Number: A0775183A

PATIENT
  Sex: Male
  Weight: 79 kg

DRUGS (10)
  1. ELTROMBOPAG [Suspect]
     Indication: THROMBOCYTOPENIA
     Dosage: 25MG PER DAY
     Route: 048
     Dates: start: 20081114, end: 20081128
  2. ELTROMBOPAG [Suspect]
     Dosage: 25MG PER DAY
     Route: 048
     Dates: start: 20081129, end: 20090101
  3. PEG-INTRON [Suspect]
     Dosage: 120MCG WEEKLY
     Route: 058
     Dates: start: 20081128
  4. REBETOL [Suspect]
     Route: 048
     Dates: start: 20081128, end: 20090320
  5. URSOLVAN [Concomitant]
     Dates: start: 20041001
  6. DAFALGAN [Concomitant]
  7. LORAZEPAM [Concomitant]
  8. NEURONTIN [Concomitant]
  9. ACETAMINOPHEN AND CODEINE PHOSPHATE [Concomitant]
  10. GAVISCON [Concomitant]

REACTIONS (1)
  - JAUNDICE CHOLESTATIC [None]
